FAERS Safety Report 6084166-6 (Version None)
Quarter: 2009Q1

REPORT INFORMATION
  Report Type: 
  Country: None (occurrence: None)
  Receive Date: 20090219
  Receipt Date: 20090210
  Transmission Date: 20090719
  Serious: Yes (Hospitalization, Other)
  Sender: FDA-Public Use
  Company Number: AT-TEVA-184745ISR

PATIENT

DRUGS (12)
  1. FLUOROURACIL [Suspect]
     Indication: COLON CANCER
     Route: 042
     Dates: start: 20071002, end: 20071220
  2. OXALIPLATIN [Suspect]
     Indication: COLON CANCER
     Route: 042
     Dates: start: 20071002, end: 20071220
  3. OXALIPLATIN [Suspect]
  4. FOLINIC ACID [Suspect]
     Indication: COLON CANCER
     Route: 042
     Dates: start: 20071002, end: 20071220
  5. FOLINIC ACID [Suspect]
  6. CETUXIMAB [Suspect]
     Indication: COLON CANCER
     Route: 042
     Dates: start: 20071002, end: 20071219
  7. CIPROFLOXACIN [Concomitant]
     Route: 042
  8. PIPERACILLIN [Concomitant]
     Route: 042
  9. ENOXAPARIN SODIUM [Concomitant]
     Route: 058
  10. ACETYLSALICYLIC ACID [Concomitant]
     Route: 042
  11. PENTOXIFYLLINE [Concomitant]
     Route: 042
  12. PANTOPRAZOLE SODIUM [Concomitant]
     Route: 042

REACTIONS (3)
  - CHOLECYSTITIS [None]
  - DIARRHOEA [None]
  - PNEUMONIA [None]
